FAERS Safety Report 14628739 (Version 1)
Quarter: 2018Q1

REPORT INFORMATION
  Report Type: Spontaneous
  Country: AU (occurrence: AU)
  Receive Date: 20180313
  Receipt Date: 20180313
  Transmission Date: 20180509
  Serious: Yes (Hospitalization, Other)
  Sender: FDA-Public Use
  Company Number: AU-VISTAPHARM, INC.-VER201803-000463

PATIENT
  Age: 20 Year
  Sex: Male

DRUGS (1)
  1. VALPROIC ACID. [Suspect]
     Active Substance: VALPROIC ACID
     Indication: PRODUCT USED FOR UNKNOWN INDICATION
     Route: 048

REACTIONS (10)
  - Brain oedema [Recovered/Resolved]
  - Lymphopenia [Recovered/Resolved]
  - Overdose [Unknown]
  - Alanine aminotransferase increased [Recovered/Resolved]
  - Bone marrow failure [Recovered/Resolved]
  - Blood alkaline phosphatase increased [Recovered/Resolved]
  - Atrial fibrillation [Recovered/Resolved]
  - Supraventricular tachycardia [Recovered/Resolved]
  - Pneumonia [Recovered/Resolved]
  - Thrombocytopenia [Recovered/Resolved]
